FAERS Safety Report 5242144-0 (Version None)
Quarter: 2007Q1

REPORT INFORMATION
  Report Type: 
  Country: None (occurrence: None)
  Receive Date: 20070213
  Receipt Date: 20070202
  Transmission Date: 20070707
  Serious: Yes (Other)
  Sender: FDA-Public Use
  Company Number: GXKR2007US01346

PATIENT
  Age: 76 Year
  Sex: Male

DRUGS (8)
  1. HYDROXYCHLOROQUINE SULFATE [Suspect]
     Indication: MUSCULOSKELETAL PAIN
     Dosage: 400 MG, QD
  2. CARVEDILOL [Concomitant]
  3. SIMVASTATIN [Concomitant]
  4. FUROSEMIDE [Concomitant]
  5. ENALAPRIL MALEATE [Concomitant]
  6. AMITRIPTYLINE HCL [Concomitant]
  7. FERROUS SULFATE TAB [Concomitant]
  8. PREDNISONE TAB [Concomitant]

REACTIONS (4)
  - MYELODYSPLASTIC SYNDROME [None]
  - NORMOCHROMIC NORMOCYTIC ANAEMIA [None]
  - PANCYTOPENIA [None]
  - REFRACTORY ANAEMIA WITH AN EXCESS OF BLASTS [None]
